FAERS Safety Report 17219215 (Version 2)
Quarter: 2020Q1

REPORT INFORMATION
  Report Type: Report from Study
  Country: US (occurrence: US)
  Receive Date: 20191231
  Receipt Date: 20200226
  Transmission Date: 20200409
  Serious: Yes (Other)
  Sender: FDA-Public Use
  Company Number: US-PFIZER INC-2019559065

PATIENT
  Age: 53 Year
  Sex: Female

DRUGS (3)
  1. IBRANCE [Suspect]
     Active Substance: PALBOCICLIB
     Dosage: 100 MG, CYCLIC (3 WEEKS ON AND 2 WEEKS OFF)
     Route: 048
  2. IBRANCE [Suspect]
     Active Substance: PALBOCICLIB
     Indication: BREAST CANCER
     Dosage: 100 MG, DAILY
     Route: 048
     Dates: start: 201612
  3. LETROZOLE. [Concomitant]
     Active Substance: LETROZOLE
     Dosage: UNK UNK, DAILY

REACTIONS (2)
  - Bone marrow failure [Unknown]
  - Feeling abnormal [Unknown]
